FAERS Safety Report 19835225 (Version 1)
Quarter: 2021Q3

REPORT INFORMATION
  Report Type: Spontaneous
  Country: US (occurrence: US)
  Receive Date: 20210914
  Receipt Date: 20210914
  Transmission Date: 20211014
  Serious: No
  Sender: FDA-Public Use
  Company Number: US-DSJP-DSU-2021-129504

PATIENT
  Age: 16 Year
  Sex: Female

DRUGS (3)
  1. LEXAPRO [Concomitant]
     Active Substance: ESCITALOPRAM OXALATE
     Indication: ANXIETY
     Dosage: 5 MG, ONCE A DAY OR TWICE DAY AS NEEDED
     Route: 065
  2. BUSPAR [Concomitant]
     Active Substance: BUSPIRONE HYDROCHLORIDE
     Indication: ANXIETY
     Dosage: 10 MG, ONCE A DAY OR TWICE DAY AS NEEDED
     Route: 065
  3. TURALIO [Suspect]
     Active Substance: PEXIDARTINIB HYDROCHLORIDE
     Indication: GIANT CELL TUMOUR OF TENDON SHEATH
     Dosage: UNK
     Route: 065
     Dates: start: 202108, end: 202109

REACTIONS (5)
  - Diarrhoea [Unknown]
  - Face oedema [Unknown]
  - Pruritus [Unknown]
  - Lip swelling [Recovering/Resolving]
  - Rash maculo-papular [Recovered/Resolved]
